FAERS Safety Report 23290172 (Version 1)
Quarter: 2023Q4

REPORT INFORMATION
  Report Type: Spontaneous
  Country: ES (occurrence: ES)
  Receive Date: 20231213
  Receipt Date: 20231213
  Transmission Date: 20240110
  Serious: Yes (Other)
  Sender: FDA-Public Use
  Company Number: ES-AEMPS-1457721

PATIENT
  Age: 8 Year
  Sex: Male

DRUGS (3)
  1. OMEPRAZOLE [Suspect]
     Active Substance: OMEPRAZOLE
     Indication: Product used for unknown indication
     Dosage: 20 MILLIGRAM, ONCE A DAY
     Route: 048
     Dates: start: 20230704, end: 20231003
  2. VENTOLIN [Concomitant]
     Active Substance: ALBUTEROL SULFATE
     Indication: Asthma
     Dosage: 200 MICROGRAM, FOUR TIMES/DAY
     Dates: start: 20221027
  3. BUDESONIDE [Concomitant]
     Active Substance: BUDESONIDE
     Indication: Childhood asthma
     Dosage: 100 MICROGRAM
     Dates: start: 20220802

REACTIONS (2)
  - Hypomagnesaemia [Unknown]
  - Paraesthesia [Recovered/Resolved]

NARRATIVE: CASE EVENT DATE: 20230807
